FAERS Safety Report 6360586-7 (Version None)
Quarter: 2009Q3

REPORT INFORMATION
  Report Type: 
  Country: None (occurrence: None)
  Receive Date: 20090915
  Receipt Date: 20090902
  Transmission Date: 20100115
  Serious: Yes (Other)
  Sender: FDA-Public Use
  Company Number: 2009AP003557

PATIENT
  Age: 26 Year
  Sex: Male

DRUGS (1)
  1. HALOPERIDOL [Suspect]
     Indication: AGITATION
     Dosage: ;1X;

REACTIONS (6)
  - CARDIAC ARREST [None]
  - CARDIOVASCULAR DISORDER [None]
  - MEDICAL DEVICE COMPLICATION [None]
  - POST PROCEDURAL COMPLICATION [None]
  - STENT MALAPPOSITION [None]
  - TORSADE DE POINTES [None]
